FAERS Safety Report 25211747 (Version 2)
Quarter: 2025Q2

REPORT INFORMATION
  Report Type: Spontaneous
  Country: RO (occurrence: RO)
  Receive Date: 20250418
  Receipt Date: 20250527
  Transmission Date: 20250716
  Serious: Yes (Hospitalization, Other)
  Sender: UCB
  Company Number: RO-UCBSA-2025022755

PATIENT
  Sex: Male
  Weight: 65 kg

DRUGS (2)
  1. BIMZELX [Suspect]
     Active Substance: BIMEKIZUMAB-BKZX
     Indication: Psoriasis
     Dosage: 320 MILLIGRAM, MONTHLY (QM)
     Route: 058
     Dates: start: 20250324, end: 20250324
  2. ISONIAZID [Suspect]
     Active Substance: ISONIAZID
     Indication: Latent tuberculosis
     Dosage: 300 MILLIGRAM, PER DAY
     Dates: start: 20250222, end: 20250403

REACTIONS (8)
  - Toxic skin eruption [Unknown]
  - Rash maculo-papular [Unknown]
  - Hepatic cytolysis [Unknown]
  - Lymphadenopathy [Unknown]
  - Inflammation [Unknown]
  - Leukocytosis [Unknown]
  - Lymphocytosis [Unknown]
  - Monocytosis [Unknown]

NARRATIVE: CASE EVENT DATE: 20250101
